FAERS Safety Report 7481265-9 (Version None)
Quarter: 2011Q2

REPORT INFORMATION
  Report Type: 
  Country: None (occurrence: None)
  Receive Date: 20110512
  Receipt Date: 20110512
  Transmission Date: 20111010
  Serious: Yes (Life-Threatening, Hospitalization)
  Sender: FDA-Public Use
  Company Number: None

PATIENT
  Age: 68 Year
  Sex: Male
  Weight: 78.6 kg

DRUGS (15)
  1. MOMETASONE FUROATE [Suspect]
     Indication: BRONCHIAL HYPERREACTIVITY
     Dosage: 2 PUFFS (440 MCG) BID INHALED
     Route: 055
  2. CEFUROXIME [Concomitant]
  3. LEVOTHYROXINE SODIUM [Concomitant]
  4. LORATADINE [Concomitant]
  5. NIACIN [Concomitant]
  6. BEXAROTENE 75 MG EISAI? [Suspect]
     Indication: MYCOSIS FUNGOIDES
     Dosage: 5 PILLS (375 MG) DAILY ORAL
     Route: 048
  7. ALBUTEROL SULFATE AUTOHALER [Concomitant]
  8. ATENOLOL [Concomitant]
  9. TERAZOSIN HCL [Concomitant]
  10. TRIAMCINOLONE [Concomitant]
  11. UREA CREAM [Concomitant]
  12. CODEINE/GUAIFENESIN [Concomitant]
  13. AZITHROMYCIN [Concomitant]
  14. FENOFIBRATE [Concomitant]
  15. OMEPRAZOLE [Concomitant]

REACTIONS (2)
  - DYSPNOEA [None]
  - PNEUMOCYSTIS JIROVECI PNEUMONIA [None]
